FAERS Safety Report 11912425 (Version 1)
Quarter: 2016Q1

REPORT INFORMATION
  Report Type: Other
  Country: GB (occurrence: GB)
  Receive Date: 20160113
  Receipt Date: 20160113
  Transmission Date: 20160526
  Serious: Yes (Disabling)
  Sender: FDA-Public Use
  Company Number: GB-DEXPHARM-20160022

PATIENT
  Age: 81 Year
  Sex: Female
  Weight: 89 kg

DRUGS (9)
  1. OMEPRAZOLE. [Suspect]
     Active Substance: OMEPRAZOLE
     Dates: start: 20151214
  2. ALENDRONIC ACID [Concomitant]
     Active Substance: ALENDRONIC ACID
     Dates: start: 20151008, end: 20151203
  3. BISOPROLOL [Concomitant]
     Active Substance: BISOPROLOL
     Dates: start: 20140618
  4. IRBESARTAN. [Concomitant]
     Active Substance: IRBESARTAN
     Dates: start: 20140618
  5. RANITIDINE [Concomitant]
     Active Substance: RANITIDINE\RANITIDINE HYDROCHLORIDE
     Dates: start: 20151026
  6. INDAPAMIDE. [Concomitant]
     Active Substance: INDAPAMIDE
     Dosage: EVERY MORNING
     Dates: start: 20060130
  7. PREDNISOLONE. [Concomitant]
     Active Substance: PREDNISOLONE
     Dates: start: 20151127
  8. PARACETAMOL [Concomitant]
     Active Substance: ACETAMINOPHEN
     Dates: start: 20130604
  9. HERMES CALCIUM D3 [Concomitant]
     Dates: start: 20150817

REACTIONS (1)
  - Diarrhoea [Recovered/Resolved]

NARRATIVE: CASE EVENT DATE: 20151229
